FAERS Safety Report 6809549-5 (Version None)
Quarter: 2010Q2

REPORT INFORMATION
  Report Type: 
  Country: None (occurrence: None)
  Receive Date: 20100630
  Receipt Date: 20100617
  Transmission Date: 20101027
  Serious: Yes (Hospitalization)
  Sender: FDA-Public Use
  Company Number: PHHY2010AU37900

PATIENT
  Sex: Female
  Weight: 60 kg

DRUGS (6)
  1. ACLASTA [Suspect]
     Indication: OSTEOPOROSIS
     Dosage: 5 MG, UNK
     Dates: start: 20100318
  2. NEXIUM [Concomitant]
     Indication: DIVERTICULITIS
  3. LEVOTHYROXINE SODIUM [Concomitant]
  4. CALCIUM WITH VITAMIN D [Concomitant]
  5. CALCIUM CARBONATE [Concomitant]
     Indication: OSTEOPOROSIS
     Dosage: 6000 MG
     Dates: start: 20060101
  6. VITAMIN D3 [Concomitant]
     Indication: OSTEOPOROSIS
     Dosage: 1000 IU
     Dates: start: 20060101

REACTIONS (5)
  - HEADACHE [None]
  - INFLUENZA LIKE ILLNESS [None]
  - NAUSEA [None]
  - PYREXIA [None]
  - VOMITING [None]
